FAERS Safety Report 19965048 (Version 1)
Quarter: 2021Q4

REPORT INFORMATION
  Report Type: Spontaneous
  Country: JP (occurrence: JP)
  Receive Date: 20211018
  Receipt Date: 20211018
  Transmission Date: 20220303
  Serious: Yes (Hospitalization)
  Sender: FDA-Public Use
  Company Number: JP-EAGLE PHARMACEUTICALS, INC.-JP-2021EAG000217

PATIENT
  Age: 72 Year
  Sex: Female

DRUGS (12)
  1. BENDAMUSTINE HYDROCHLORIDE [Suspect]
     Active Substance: BENDAMUSTINE HYDROCHLORIDE
     Indication: Follicular lymphoma
     Dosage: UNK (CYCLE 1)
     Route: 041
  2. BENDAMUSTINE HYDROCHLORIDE [Suspect]
     Active Substance: BENDAMUSTINE HYDROCHLORIDE
     Dosage: UNK (CYCLE 2)
     Route: 041
  3. BENDAMUSTINE HYDROCHLORIDE [Suspect]
     Active Substance: BENDAMUSTINE HYDROCHLORIDE
     Dosage: UNK (CYCLE 3)
     Route: 041
  4. BENDAMUSTINE HYDROCHLORIDE [Suspect]
     Active Substance: BENDAMUSTINE HYDROCHLORIDE
     Dosage: UNK (CYCLE 4)
     Route: 041
  5. BENDAMUSTINE HYDROCHLORIDE [Suspect]
     Active Substance: BENDAMUSTINE HYDROCHLORIDE
     Dosage: UNK (CYCLE 5)
     Route: 041
  6. BENDAMUSTINE HYDROCHLORIDE [Suspect]
     Active Substance: BENDAMUSTINE HYDROCHLORIDE
     Dosage: UNK (CYCLE 6)
     Route: 041
  7. GAZYVA [Concomitant]
     Active Substance: OBINUTUZUMAB
     Indication: Follicular lymphoma
     Dosage: UNK (CYCLE 1)
     Route: 041
  8. GAZYVA [Concomitant]
     Active Substance: OBINUTUZUMAB
     Dosage: UNK (CYCLE 2)
     Route: 041
  9. GAZYVA [Concomitant]
     Active Substance: OBINUTUZUMAB
     Dosage: UNK (CYCLE 3)
     Route: 041
  10. GAZYVA [Concomitant]
     Active Substance: OBINUTUZUMAB
     Dosage: UNK (CYCLE 4)
     Route: 041
  11. GAZYVA [Concomitant]
     Active Substance: OBINUTUZUMAB
     Dosage: UNK (CYCLE 5)
     Route: 041
  12. GAZYVA [Concomitant]
     Active Substance: OBINUTUZUMAB
     Dosage: UNK (CYCLE 6)
     Route: 041

REACTIONS (2)
  - Obliterative bronchiolitis [Recovering/Resolving]
  - Oral lichen planus [Recovering/Resolving]
